FAERS Safety Report 20477432 (Version 1)
Quarter: 2022Q1

REPORT INFORMATION
  Report Type: Report from Study
  Country: CA (occurrence: CA)
  Receive Date: 20220215
  Receipt Date: 20220215
  Transmission Date: 20220423
  Serious: Yes (Other)
  Sender: FDA-Public Use
  Company Number: CA-ABBVIE-22K-028-4279098-00

PATIENT
  Sex: Female

DRUGS (1)
  1. HUMIRA [Suspect]
     Active Substance: ADALIMUMAB
     Indication: Crohn^s disease
     Route: 058
     Dates: start: 20210304

REACTIONS (5)
  - Abdominal adhesions [Unknown]
  - Intestinal lipomatosis [Unknown]
  - Abdominal pain [Unknown]
  - Diarrhoea [Unknown]
  - Arthralgia [Unknown]
